FAERS Safety Report 9350429 (Version 1)
Quarter: 2013Q2

REPORT INFORMATION
  Report Type: Spontaneous
  Country: US (occurrence: US)
  Receive Date: 20130617
  Receipt Date: 20130617
  Transmission Date: 20140414
  Serious: No
  Sender: FDA-Public Use
  Company Number: US-PFIZER INC-2013176293

PATIENT
  Age: 80 Year
  Sex: Male

DRUGS (10)
  1. XELJANZ [Suspect]
     Dosage: 5 MG, 2X/DAY
     Route: 048
  2. SERTRALINE [Concomitant]
     Dosage: 25 MG, UNK
  3. FUROSEMIDE [Concomitant]
     Dosage: 20 MG, UNK
  4. PREDNISONE [Concomitant]
     Dosage: 1 MG, UNK
  5. OMEPRAZOLE [Concomitant]
     Dosage: 10 MG, UNK
  6. LOSARTAN POTASSIUM [Concomitant]
     Dosage: 25 MG, UNK
  7. FISH OIL [Concomitant]
     Dosage: UNK
  8. ALEVE [Concomitant]
     Dosage: 220 MG, UNK
  9. ASPIRIN [Concomitant]
     Dosage: 81 MG, UNK
  10. AZELASTINE [Concomitant]
     Dosage: 0.1 %, UNK

REACTIONS (3)
  - Increased appetite [Unknown]
  - Somnolence [Unknown]
  - Fatigue [Unknown]
